FAERS Safety Report 22922878 (Version 3)
Quarter: 2023Q4

REPORT INFORMATION
  Report Type: Spontaneous
  Country: GR (occurrence: None)
  Receive Date: 20230908
  Receipt Date: 20231013
  Transmission Date: 20240110
  Serious: Yes (Other)
  Sender: FDA-Public Use
  Company Number: 2023A196248

PATIENT
  Age: 92 Year
  Sex: Female

DRUGS (10)
  1. CRESTOR [Suspect]
     Active Substance: ROSUVASTATIN CALCIUM
     Indication: Hyperlipidaemia
     Dosage: UNK
     Dates: start: 20230810
  2. HYDROCHLOROTHIAZIDE\VALSARTAN [Suspect]
     Active Substance: HYDROCHLOROTHIAZIDE\VALSARTAN
     Indication: Hypertension
     Dosage: UNK
  3. CORTISONE [Suspect]
     Active Substance: CORTISONE
     Indication: Product used for unknown indication
     Dosage: UNK
     Dates: start: 2013
  4. CORTISONE [Suspect]
     Active Substance: CORTISONE
     Indication: Myalgia
     Dosage: UNK
     Dates: start: 2013
  5. CORTISONE [Suspect]
     Active Substance: CORTISONE
     Indication: Product used for unknown indication
     Dosage: 4 MG
  6. CORTISONE [Suspect]
     Active Substance: CORTISONE
     Indication: Myalgia
     Dosage: 4 MG
  7. NASONEX [Suspect]
     Active Substance: MOMETASONE FUROATE
     Indication: Rhinitis allergic
     Dosage: 1 SPRAY EVERY NIGHT
     Dates: start: 20230727, end: 202308
  8. NASONEX [Suspect]
     Active Substance: MOMETASONE FUROATE
     Indication: Rhinitis allergic
     Dosage: TWICE PER DAY IN EACH NOSTRIL
     Dates: start: 20230810
  9. NEBIVOLOL HYDROCHLORIDE [Suspect]
     Active Substance: NEBIVOLOL HYDROCHLORIDE
     Indication: Hypertension
     Dosage: UNK
  10. ETANERCEPT [Suspect]
     Active Substance: ETANERCEPT
     Indication: Arthritis
     Dosage: UNK

REACTIONS (8)
  - Syncope [Recovered/Resolved]
  - Flushing [Recovering/Resolving]
  - Burning sensation [Recovering/Resolving]
  - Hypnagogic hallucination [Recovering/Resolving]
  - Headache [Recovering/Resolving]
  - Insomnia [Unknown]
  - Brain fog [Not Recovered/Not Resolved]
  - Visual impairment [Not Recovered/Not Resolved]

NARRATIVE: CASE EVENT DATE: 20230810
